FAERS Safety Report 19500481 (Version 1)
Quarter: 2021Q3

REPORT INFORMATION
  Report Type: Spontaneous
  Country: CN (occurrence: CN)
  Receive Date: 20210706
  Receipt Date: 20210706
  Transmission Date: 20211014
  Serious: Yes (Other)
  Sender: FDA-Public Use
  Company Number: CN-BAXTER-2021BAX018558

PATIENT
  Age: 69 Year
  Sex: Female
  Weight: 52 kg

DRUGS (4)
  1. ZYVOX [Concomitant]
     Active Substance: LINEZOLID
     Indication: FUNGAL INFECTION
     Dosage: DOSAGE FORM: TABLET
     Route: 048
     Dates: start: 20200628, end: 20200729
  2. ENDOXAN [Suspect]
     Active Substance: CYCLOPHOSPHAMIDE
     Indication: AUTOIMMUNE NEPHRITIS
  3. 0.9% SODIUM CHLORIDE INJECTION [Suspect]
     Active Substance: SODIUM CHLORIDE
     Indication: MEDICATION DILUTION
     Dosage: 0.9% NS 20 ML + CYCLOPHOSPHAMIDE 0.2 G
     Route: 040
     Dates: start: 20200625, end: 20200629
  4. ENDOXAN [Suspect]
     Active Substance: CYCLOPHOSPHAMIDE
     Indication: ANTINEUTROPHIL CYTOPLASMIC ANTIBODY POSITIVE
     Dosage: CYCLOPHOSPHAMIDE 0.2 G + 0.9% NORMAL SALINE (NS) 20 ML
     Route: 040
     Dates: start: 20200625, end: 20200629

REACTIONS (1)
  - White blood cell count decreased [Recovered/Resolved]

NARRATIVE: CASE EVENT DATE: 20200702
